FAERS Safety Report 9157584 (Version 1)
Quarter: 2013Q1

REPORT INFORMATION
  Report Type: Spontaneous
  Country: US (occurrence: None)
  Receive Date: 20130311
  Receipt Date: 20130311
  Transmission Date: 20140127
  Serious: Yes (Disabling)
  Sender: FDA-Public Use
  Company Number: None

PATIENT
  Age: 13 Year
  Sex: Male
  Weight: 38.1 kg

DRUGS (2)
  1. GABAPENTIN [Suspect]
     Indication: COMPLEX REGIONAL PAIN SYNDROME
     Route: 048
     Dates: start: 20130219, end: 20130307
  2. FLEXIRIL [Concomitant]

REACTIONS (4)
  - Myoclonus [None]
  - Muscle spasms [None]
  - Contusion [None]
  - Activities of daily living impaired [None]
